FAERS Safety Report 9495625 (Version 1)
Quarter: 2013Q3

REPORT INFORMATION
  Report Type: Spontaneous
  Country: PR (occurrence: PR)
  Receive Date: 20130903
  Receipt Date: 20130903
  Transmission Date: 20140515
  Serious: No
  Sender: FDA-Public Use
  Company Number: PR-BAXTER-2013BAX033930

PATIENT
  Sex: 0

DRUGS (5)
  1. PREMASOL 6% [Suspect]
     Indication: PARENTERAL NUTRITION
     Dosage: 3.5 GRAM/KG/DAY
     Route: 065
     Dates: start: 20130731, end: 20130801
  2. 70% DEXTROSE INJECTION USP [Suspect]
     Indication: PARENTERAL NUTRITION
     Dosage: 10%
     Route: 065
     Dates: start: 20130731, end: 20130801
  3. 5% SODIUM CHLORIDE INJECTION [Suspect]
     Indication: PARENTERAL NUTRITION
     Dosage: 3MEQ/KG/DAY
     Route: 065
     Dates: start: 20130731, end: 20130801
  4. STERILE WATER FOR INJECTION USP [Suspect]
     Indication: PARENTERAL NUTRITION
     Dosage: VARYING DAILY DOSES
     Route: 065
     Dates: start: 20130731, end: 20130801
  5. TOTAL PARENTERAL NUTRITION [Concomitant]
     Indication: PARENTERAL NUTRITION
     Route: 065
     Dates: start: 20130731, end: 20130801

REACTIONS (2)
  - Product compounding quality issue [Recovered/Resolved]
  - No adverse event [Recovered/Resolved]
